FAERS Safety Report 20871721 (Version 1)
Quarter: 2022Q2

REPORT INFORMATION
  Report Type: Spontaneous
  Country: DE (occurrence: DE)
  Receive Date: 20220525
  Receipt Date: 20220525
  Transmission Date: 20220720
  Serious: Yes (Other)
  Sender: FDA-Public Use
  Company Number: DE-ROCHE-3091065

PATIENT
  Age: 61 Year
  Sex: Female

DRUGS (18)
  1. BENDAMUSTINE HYDROCHLORIDE [Suspect]
     Active Substance: BENDAMUSTINE HYDROCHLORIDE
     Indication: Follicular lymphoma
     Dosage: UNK (WITH RITUXIMAB)
     Route: 065
     Dates: start: 201406, end: 201412
  2. DOXORUBICIN [Suspect]
     Active Substance: DOXORUBICIN
     Indication: Follicular lymphoma
     Dosage: UNK (SIX CYCLES AS R-CHOP)
     Route: 065
     Dates: start: 200508, end: 200601
  3. VINCRISTINE SULFATE [Suspect]
     Active Substance: VINCRISTINE SULFATE
     Indication: Follicular lymphoma
     Dosage: UNK, (SIX CYCLES AS R-CHOP)
     Route: 065
     Dates: start: 200508, end: 200601
  4. BEAM [Suspect]
     Active Substance: SODIUM FLUORIDE
     Indication: Follicular lymphoma
     Dosage: UNK (R-DEXA-BEAM)
     Route: 065
     Dates: start: 201008, end: 201008
  5. BEAM [Suspect]
     Active Substance: SODIUM FLUORIDE
     Dosage: UNK (R-BEAM)
     Route: 065
     Dates: start: 2010, end: 2010
  6. BEAM [Suspect]
     Active Substance: SODIUM FLUORIDE
     Dosage: UNK (R-DEXA-BEAM)
     Route: 065
     Dates: start: 201007, end: 201007
  7. CYCLOPHOSPHAMIDE [Suspect]
     Active Substance: CYCLOPHOSPHAMIDE
     Indication: Follicular lymphoma
     Dosage: UNK (SIX CYCLES AS R-CHOP)
     Route: 065
     Dates: start: 200508, end: 200601
  8. DEXAMETHASONE [Suspect]
     Active Substance: DEXAMETHASONE
     Indication: Follicular lymphoma
     Dosage: UNK (R-DEXA-BEAM)
     Route: 065
     Dates: start: 201008, end: 201008
  9. DEXAMETHASONE [Suspect]
     Active Substance: DEXAMETHASONE
     Dosage: UNK (R-DEXA-BEAM)
     Route: 065
     Dates: start: 201007, end: 201007
  10. RITUXIMAB [Suspect]
     Active Substance: RITUXIMAB
     Indication: Diffuse large B-cell lymphoma
     Dosage: UNK (SIX CYCLES AS R-CHOP)
     Route: 065
     Dates: start: 200508, end: 200601
  11. RITUXIMAB [Suspect]
     Active Substance: RITUXIMAB
     Indication: Follicular lymphoma
     Dosage: UNK (TWO CYCLES)
     Route: 065
     Dates: start: 200508, end: 200601
  12. RITUXIMAB [Suspect]
     Active Substance: RITUXIMAB
     Indication: Follicular lymphoma
     Dosage: UNK (WITH BENDAMUSTIN)
     Route: 065
     Dates: start: 201406, end: 201412
  13. RITUXIMAB [Suspect]
     Active Substance: RITUXIMAB
     Dosage: UNK (R-BEAM)
     Route: 065
     Dates: start: 2010, end: 2010
  14. RITUXIMAB [Suspect]
     Active Substance: RITUXIMAB
     Dosage: UNK (R-DEXA-BEAM)
     Route: 065
     Dates: start: 201008, end: 201008
  15. RITUXIMAB [Suspect]
     Active Substance: RITUXIMAB
     Dosage: UNK (WITH REVLEMID)
     Route: 065
     Dates: start: 201901, end: 201902
  16. RITUXIMAB [Suspect]
     Active Substance: RITUXIMAB
     Dosage: UNK (R-DEXA-BEAM)
     Route: 065
     Dates: start: 201007, end: 201007
  17. PREDNISONE [Suspect]
     Active Substance: PREDNISONE
     Indication: Follicular lymphoma
     Dosage: UNK (SIX CYCLES AS R-CHOP)
     Route: 065
     Dates: start: 200508, end: 200601
  18. REVLIMID [Suspect]
     Active Substance: LENALIDOMIDE
     Indication: Diffuse large B-cell lymphoma
     Dosage: UNK (WITH RITUXIMAB)
     Route: 065
     Dates: start: 201901, end: 201902

REACTIONS (4)
  - Lymphoma [Not Recovered/Not Resolved]
  - Thrombocytopenia [Unknown]
  - Uterine prolapse [Unknown]
  - Vaginal prolapse [Not Recovered/Not Resolved]

NARRATIVE: CASE EVENT DATE: 20130101
